FAERS Safety Report 6997331-8 (Version None)
Quarter: 2010Q3

REPORT INFORMATION
  Report Type: 
  Country: None (occurrence: None)
  Receive Date: 20100918
  Receipt Date: 20090930
  Transmission Date: 20110219
  Serious: No
  Sender: FDA-Public Use
  Company Number: US-WYE-H11356409

PATIENT
  Age: 66 Year
  Sex: Female

DRUGS (1)
  1. CORDARONE [Suspect]
     Indication: CARDIOMYOPATHY
     Route: 048

REACTIONS (2)
  - MUSCULAR WEAKNESS [None]
  - OEDEMA PERIPHERAL [None]
